FAERS Safety Report 13122195 (Version 10)
Quarter: 2017Q3

REPORT INFORMATION
  Report Type: Spontaneous
  Country: KR (occurrence: KR)
  Receive Date: 20170117
  Receipt Date: 20170824
  Transmission Date: 20171127
  Serious: Yes (Other)
  Sender: FDA-Public Use
  Company Number: KR-009507513-1701KOR006285

PATIENT
  Age: 47 Year
  Sex: Female
  Weight: 66.1 kg

DRUGS (52)
  1. MYPOL [Concomitant]
     Dosage: 1 DF, UNK
     Route: 048
     Dates: start: 20160415
  2. MUCOSTA [Concomitant]
     Active Substance: REBAMIPIDE
     Indication: PROPHYLAXIS
     Dosage: 1 TABLET (100 MG), THREE TIMES A DAY
     Route: 048
     Dates: start: 20160316
  3. OMED [Concomitant]
     Indication: PROPHYLAXIS
     Dosage: 1 TABLET (10 MG), TWICE A DAY
     Route: 048
     Dates: start: 20160316
  4. TRIDOL (TRAMADOL HYDROCHLORIDE) [Concomitant]
     Indication: CANCER PAIN
     Dosage: 1 TABLET (100 MG), TWICE A DAY
     Route: 048
     Dates: start: 20160318
  5. CISPLATIN. [Concomitant]
     Active Substance: CISPLATIN
     Dosage: , CYCLE 7 (STRENGTH: 50MG/100ML)100 MG, ONCE
     Route: 042
     Dates: start: 20161205, end: 20161205
  6. FLUOROURACIL. [Concomitant]
     Active Substance: FLUOROURACIL
     Dosage: 1670 MG, DAILY, CYCLE 6  (STRENGTH: 1000MG/20ML)
     Route: 042
     Dates: start: 20161105, end: 20161108
  7. MANNITOL. [Concomitant]
     Active Substance: MANNITOL
     Indication: PREMEDICATION
     Dosage: 100 ML, ONCE (STRENGTH: 15%, 100ML)
     Route: 042
     Dates: start: 20160419, end: 20160419
  8. ZIPAN (TRAMADOL HYDROCHLORIDE) [Concomitant]
     Dosage: 100 MG, ONCE
     Route: 042
     Dates: start: 20161205, end: 20161205
  9. DEXAMETHASONE. [Concomitant]
     Active Substance: DEXAMETHASONE
     Dosage: 3.75 MG, BID
     Route: 048
     Dates: start: 20160624, end: 20160626
  10. EMEND (FOSAPREPITANT DIMEGLUMINE) [Suspect]
     Active Substance: FOSAPREPITANT DIMEGLUMINE
     Indication: PROPHYLAXIS OF NAUSEA AND VOMITING
     Dosage: 150 MG, ONCE
     Route: 042
     Dates: start: 20160320, end: 20160320
  11. FLUOROURACIL. [Concomitant]
     Active Substance: FLUOROURACIL
     Dosage: 1670 MG, DAILY, CYCLE 5  (STRENGTH: 1000MG/20ML)
     Route: 042
     Dates: start: 20160819, end: 20160822
  12. FLUOROURACIL. [Concomitant]
     Active Substance: FLUOROURACIL
     Dosage: 1680 MG, DAILY, CYCLE 7 (STRENGTH: 1000MG/20ML)
     Route: 042
     Dates: start: 20161205, end: 20161208
  13. DEXAMETHASONE SODIUM PHOSPHATE. [Concomitant]
     Active Substance: DEXAMETHASONE SODIUM PHOSPHATE
     Dosage: 10 MG, ONCE
     Route: 042
     Dates: start: 20160819, end: 20160819
  14. DEXAMETHASONE SODIUM PHOSPHATE. [Concomitant]
     Active Substance: DEXAMETHASONE SODIUM PHOSPHATE
     Dosage: 10 MG, ONCE
     Route: 042
     Dates: start: 20161105, end: 20161105
  15. MANNITOL. [Concomitant]
     Active Substance: MANNITOL
     Dosage: 100 ML, ONCE (STRENGTH: 15%, 100ML)
     Route: 042
     Dates: start: 20161105, end: 20161105
  16. TRIDOL (TRAMADOL HYDROCHLORIDE) [Concomitant]
     Dosage: 100 MG, TID
     Route: 048
     Dates: start: 20160321, end: 20160321
  17. EMEND (FOSAPREPITANT DIMEGLUMINE) [Suspect]
     Active Substance: FOSAPREPITANT DIMEGLUMINE
     Dosage: 150 MG, ONCE
     Route: 042
     Dates: start: 20160819, end: 20160819
  18. EMEND (FOSAPREPITANT DIMEGLUMINE) [Suspect]
     Active Substance: FOSAPREPITANT DIMEGLUMINE
     Dosage: 150 MG, ONCE
     Route: 042
     Dates: start: 20161205, end: 20161205
  19. CISPLATIN. [Concomitant]
     Active Substance: CISPLATIN
     Dosage: 97.2 MG, ONCE, CYCLE 2 (STRENGTH: 50MG/100ML)
     Route: 042
     Dates: start: 20160419, end: 20160419
  20. CISPLATIN. [Concomitant]
     Active Substance: CISPLATIN
     Dosage: 96.6 MG, ONCE, CYCLE 3 (STRENGTH: 50MG/100ML)
     Route: 042
     Dates: start: 20160623, end: 20160623
  21. CISPLATIN. [Concomitant]
     Active Substance: CISPLATIN
     Dosage: 100 MG, ONCE, CYCLE 6 (STRENGTH: 50MG/100ML)
     Route: 042
     Dates: start: 20161105, end: 20161105
  22. FLUOROURACIL. [Concomitant]
     Active Substance: FLUOROURACIL
     Dosage: 1620 MG, DAILY, CYCLE 2  (STRENGTH: 1000MG/20ML)
     Route: 042
     Dates: start: 20160419, end: 20160422
  23. DEXAMETHASONE SODIUM PHOSPHATE. [Concomitant]
     Active Substance: DEXAMETHASONE SODIUM PHOSPHATE
     Dosage: 10 MG, ONCE
     Route: 042
     Dates: start: 20160419, end: 20160419
  24. DEXAMETHASONE SODIUM PHOSPHATE. [Concomitant]
     Active Substance: DEXAMETHASONE SODIUM PHOSPHATE
     Dosage: 10 MG, ONCE
     Route: 042
     Dates: start: 20160623, end: 20160623
  25. LASIX [Concomitant]
     Active Substance: FUROSEMIDE
     Indication: PROPHYLAXIS
     Dosage: 20 MG, ONCE (STRENGTH: 20MG/2ML)
     Route: 042
     Dates: start: 20160320, end: 20160320
  26. DEXAMETHASONE. [Concomitant]
     Active Substance: DEXAMETHASONE
     Indication: PROPHYLAXIS OF NAUSEA AND VOMITING
     Dosage: 3.75 MG, BID
     Route: 048
     Dates: start: 20160321, end: 20160323
  27. DEXAMETHASONE. [Concomitant]
     Active Substance: DEXAMETHASONE
     Dosage: 3.75 MG, BID
     Route: 048
     Dates: start: 20160820, end: 20160822
  28. DEXAMETHASONE. [Concomitant]
     Active Substance: DEXAMETHASONE
     Dosage: 3.75 MG, BID
     Route: 048
     Dates: start: 20161206, end: 20161208
  29. EMEND (FOSAPREPITANT DIMEGLUMINE) [Suspect]
     Active Substance: FOSAPREPITANT DIMEGLUMINE
     Dosage: 150 MG, ONCE
     Route: 042
     Dates: start: 20160623, end: 20160623
  30. FLUOROURACIL. [Concomitant]
     Active Substance: FLUOROURACIL
     Dosage: 1610 MG, DAILY, CYCLE 3  (STRENGTH: 1000MG/20ML)
     Route: 042
     Dates: start: 20160623, end: 20160626
  31. ZIPAN (TRAMADOL HYDROCHLORIDE) [Concomitant]
     Indication: CANCER PAIN
     Dosage: 2 MG, DAILY (STRENGTH: 100MG/2ML)
     Route: 042
     Dates: start: 20160115, end: 20160424
  32. EMEND (FOSAPREPITANT DIMEGLUMINE) [Suspect]
     Active Substance: FOSAPREPITANT DIMEGLUMINE
     Dosage: 150 MG, ONCE
     Route: 042
     Dates: start: 20160419, end: 20160419
  33. EMEND (FOSAPREPITANT DIMEGLUMINE) [Suspect]
     Active Substance: FOSAPREPITANT DIMEGLUMINE
     Dosage: 150 MG, ONCE
     Route: 042
     Dates: start: 20161105, end: 20161105
  34. DEXAMETHASONE SODIUM PHOSPHATE. [Concomitant]
     Active Substance: DEXAMETHASONE SODIUM PHOSPHATE
     Dosage: 10 MG, ONCE
     Route: 042
     Dates: start: 20161205, end: 20161205
  35. MANNITOL. [Concomitant]
     Active Substance: MANNITOL
     Indication: PROPHYLAXIS
     Dosage: 100 ML, ONCE (STRENGTH: 15%, 100ML)
     Route: 042
     Dates: start: 20160320, end: 20160320
  36. LASIX [Concomitant]
     Active Substance: FUROSEMIDE
     Dosage: 20 MG, ONCE (STRENGTH: 20MG/2ML)
     Route: 042
     Dates: start: 20161205, end: 20161205
  37. DEXAMETHASONE SODIUM PHOSPHATE. [Concomitant]
     Active Substance: DEXAMETHASONE SODIUM PHOSPHATE
     Indication: PROPHYLAXIS OF NAUSEA AND VOMITING
     Dosage: 10 MG, ONCE
     Route: 042
     Dates: start: 20160320, end: 20160320
  38. LASIX [Concomitant]
     Active Substance: FUROSEMIDE
     Indication: PREMEDICATION
     Dosage: 20 MG, ONCE (STRENGTH: 20MG/2ML)
     Route: 042
     Dates: start: 20160419, end: 20160419
  39. LASIX [Concomitant]
     Active Substance: FUROSEMIDE
     Dosage: 20 MG, ONCE (STRENGTH: 20MG/2ML)
     Route: 042
     Dates: start: 20160623, end: 20160623
  40. LASIX [Concomitant]
     Active Substance: FUROSEMIDE
     Dosage: 20 MG, ONCE (STRENGTH: 20MG/2ML)
     Route: 042
     Dates: start: 20161105, end: 20161105
  41. MYPOL [Concomitant]
     Indication: CANCER PAIN
     Dosage: 1 CAPSULE, TWICE A DAY
     Route: 048
     Dates: start: 20160310
  42. ULCERLMIN [Concomitant]
     Active Substance: SUCRALFATE
     Indication: PROPHYLAXIS
     Dosage: 15 ML, THREE TIMES A DAY (STRENGTH: 1G/15ML)
     Route: 048
     Dates: start: 20160316
  43. ZIPAN (TRAMADOL HYDROCHLORIDE) [Concomitant]
     Dosage: 2 MG, QD  (STRENGTH: 100MG/2ML)
     Route: 042
     Dates: start: 20160321, end: 20160324
  44. DEXAMETHASONE. [Concomitant]
     Active Substance: DEXAMETHASONE
     Dosage: 3.75 MG, BID
     Route: 048
     Dates: start: 20161106, end: 20161108
  45. CISPLATIN. [Concomitant]
     Active Substance: CISPLATIN
     Indication: VAGINAL CANCER
     Dosage: 97.8 MG, ONCE, CYCLE 1 (STRENGTH: 50MG/100ML)
     Route: 042
     Dates: start: 20160320, end: 20160320
  46. CISPLATIN. [Concomitant]
     Active Substance: CISPLATIN
     Dosage: 100 MG, ONCE, CYCLE 5 (STRENGTH: 50MG/100ML)
     Route: 042
     Dates: start: 20160819, end: 20160819
  47. FLUOROURACIL. [Concomitant]
     Active Substance: FLUOROURACIL
     Indication: VAGINAL CANCER
     Dosage: 1630 MG, DAILY, CYCLE 1  (STRENGTH: 1000MG/20ML)
     Route: 042
     Dates: start: 20160320, end: 20160323
  48. MANNITOL. [Concomitant]
     Active Substance: MANNITOL
     Dosage: 100 ML, ONCE (STRENGTH: 15%, 100ML)
     Route: 042
     Dates: start: 20160626, end: 20160626
  49. MANNITOL. [Concomitant]
     Active Substance: MANNITOL
     Dosage: 100 ML, ONCE (STRENGTH: 15%, 100ML)
     Route: 042
     Dates: start: 20160819, end: 20160819
  50. MANNITOL. [Concomitant]
     Active Substance: MANNITOL
     Dosage: 100 ML, ONCE (STRENGTH: 15%, 100ML)
     Route: 042
     Dates: start: 20161205, end: 20161205
  51. LASIX [Concomitant]
     Active Substance: FUROSEMIDE
     Dosage: 20 MG, ONCE (STRENGTH: 20MG/2ML)
     Route: 042
     Dates: start: 20160819, end: 20160819
  52. DEXAMETHASONE. [Concomitant]
     Active Substance: DEXAMETHASONE
     Dosage: 3.75 MG, BID
     Route: 048
     Dates: start: 20160419, end: 20160422

REACTIONS (13)
  - Rectal haemorrhage [Recovered/Resolved]
  - Vulvovaginal pain [Recovered/Resolved]
  - Drug ineffective [Unknown]
  - Insomnia [Recovering/Resolving]
  - Intervertebral disc protrusion [Recovered/Resolved]
  - Anxiety [Recovered/Resolved]
  - Proctalgia [Recovered/Resolved]
  - Oedema [Recovered/Resolved]
  - Nausea [Recovered/Resolved]
  - Neck pain [Recovered/Resolved]
  - Depression [Recovering/Resolving]
  - Urticaria [Recovered/Resolved]
  - Vaginal haemorrhage [Recovered/Resolved]

NARRATIVE: CASE EVENT DATE: 20160320
